FAERS Safety Report 6712164-5 (Version None)
Quarter: 2010Q2

REPORT INFORMATION
  Report Type: 
  Country: None (occurrence: None)
  Receive Date: 20100505
  Receipt Date: 20100426
  Transmission Date: 20101027
  Serious: Yes (Hospitalization)
  Sender: FDA-Public Use
  Company Number: US-ROCHE-699572

PATIENT
  Sex: Male
  Weight: 74.3 kg

DRUGS (25)
  1. TOCILIZUMAB [Suspect]
     Indication: RHEUMATOID ARTHRITIS
     Dosage: FORM: INFUSION, DATE OF LAST DOSE PRIOR TO SAE: 04 FEBRUARY 2010.
     Route: 042
     Dates: start: 20050921, end: 20100205
  2. TOCILIZUMAB [Suspect]
     Dosage: PATIENT WAS ENROLLED IN STUDY NUMBER WA18062 AND RECEIVED TOCILIZUMAB.
     Route: 065
  3. METHOTREXATE [Suspect]
     Dosage: AS MUCH NEEDED.
     Route: 065
     Dates: start: 20050727
  4. METHOTREXATE [Suspect]
     Dosage: TOTAL DAILY DOSE: 15 MG PER WEEK
     Route: 065
     Dates: start: 20080109, end: 20100223
  5. PREDNISONE [Suspect]
     Route: 065
     Dates: start: 20001102, end: 20100223
  6. PREDNISONE [Suspect]
     Route: 065
     Dates: start: 20100224
  7. FOLIC ACID [Concomitant]
     Dates: start: 20050726
  8. PLAVIX [Concomitant]
     Dates: start: 20031022
  9. FOSAMAX [Concomitant]
     Dosage: TOTAL DAILY DOSE: 70 MG PER WEEK
     Dates: start: 20030731, end: 20100223
  10. HYDROCHLOROTHIAZIDE [Concomitant]
     Dates: start: 20031216
  11. TOPROL-XL [Concomitant]
     Dates: start: 20031022
  12. ISOSORBIDE MONONITRATE [Concomitant]
     Dates: start: 20031119
  13. CALCIUM/VITAMIN D [Concomitant]
     Dosage: 600MG/200 IU
     Dates: start: 20040422
  14. MULTIVITAMIN NOS [Concomitant]
     Dosage: TDD: 1
     Dates: start: 20010406
  15. LEVOXYL [Concomitant]
     Dates: start: 20051123
  16. LOVASTATIN [Concomitant]
     Dates: start: 20060210
  17. OMEPRAZOLE [Concomitant]
     Dates: start: 20060616
  18. ASPIRIN [Concomitant]
     Dates: start: 20060819, end: 20100309
  19. ASPIRIN [Concomitant]
     Dates: start: 20100408
  20. METFORMIN HCL [Concomitant]
     Dosage: DRUG NAME REPORTED AS METFORMIN HC.
     Dates: start: 20070423
  21. ALBUTEROL [Concomitant]
     Dates: start: 20030920
  22. SIMVASTATIN [Concomitant]
     Dates: start: 20080129
  23. K-DUR [Concomitant]
     Dates: start: 20090528
  24. GLIPIZIDE [Concomitant]
     Dates: start: 20070114, end: 20100331
  25. SWINE FLU VACCINE [Concomitant]
     Dosage: DRUG REPORTED AS: H1N1 INFLUENZA VACCINE
     Dates: start: 20100121, end: 20100121

REACTIONS (3)
  - ILEUS PARALYTIC [None]
  - PANCREATIC NEOPLASM [None]
  - RENAL CYST [None]
